FAERS Safety Report 14348868 (Version 3)
Quarter: 2018Q1

REPORT INFORMATION
  Report Type: Spontaneous
  Country: US (occurrence: US)
  Receive Date: 20180104
  Receipt Date: 20180211
  Transmission Date: 20180509
  Serious: No
  Sender: FDA-Public Use
  Company Number: US-TEVA-2017-US-837349

PATIENT
  Sex: Female

DRUGS (2)
  1. EQ MICON 7 DISPOSAL [Suspect]
     Active Substance: MICONAZOLE
     Indication: FUNGAL INFECTION
     Route: 067
     Dates: start: 201707
  2. EQ MICON 7 DISPOSAL [Suspect]
     Active Substance: MICONAZOLE
     Dates: start: 20171025

REACTIONS (8)
  - Drug intolerance [Unknown]
  - Vaginal odour [Unknown]
  - Product odour abnormal [Unknown]
  - Dizziness [Unknown]
  - Blood pressure increased [Unknown]
  - Feeling hot [Unknown]
  - Vaginal haemorrhage [Unknown]
  - Feeling abnormal [Unknown]

NARRATIVE: CASE EVENT DATE: 20171213
